FAERS Safety Report 7079915-4 (Version None)
Quarter: 2010Q4

REPORT INFORMATION
  Report Type: 
  Country: None (occurrence: None)
  Receive Date: 20101102
  Receipt Date: 20101101
  Transmission Date: 20110411
  Serious: Yes (Other)
  Sender: FDA-Public Use
  Company Number: US-PFIZER INC-2010125641

PATIENT
  Sex: Female
  Weight: 78.471 kg

DRUGS (22)
  1. TOVIAZ [Suspect]
     Indication: HYPERTONIC BLADDER
     Dosage: 4 MG, 1X/DAY
     Route: 048
     Dates: start: 20100923, end: 20101001
  2. TOVIAZ [Suspect]
     Indication: AUTOMATIC BLADDER
  3. TOVIAZ [Suspect]
     Indication: MICTURITION URGENCY
  4. MIRAPEX [Concomitant]
     Dosage: UNK
  5. NEURONTIN [Concomitant]
     Dosage: 1200 MG, DAILY
  6. HYDROCHLOROTHIAZIDE [Concomitant]
     Dosage: 25 MG, 1X/DAY
  7. NYSTATIN [Concomitant]
     Dosage: UNK
  8. AVAPRO [Concomitant]
     Dosage: 300 MG, 1X/DAY
  9. QUINAPRIL [Concomitant]
     Dosage: UNK
  10. SYNTHROID [Concomitant]
     Dosage: 200 UG, 1X/DAY
  11. PRILOSEC [Concomitant]
     Dosage: 20 MG, 1X/DAY
  12. BUSPAR [Concomitant]
     Dosage: 20 MG, 1X/DAY
  13. COREG [Concomitant]
     Dosage: UNK
  14. WELCHOL [Concomitant]
     Dosage: UNK
  15. ASPIRIN [Concomitant]
     Dosage: UNK
  16. CO-Q-10 [Concomitant]
     Dosage: UNK
  17. MULTI-VITAMINS [Concomitant]
     Dosage: UNK
  18. GLUCOSAMINE [Concomitant]
     Dosage: UNK
  19. FISH OIL [Concomitant]
     Dosage: UNK
  20. METAMUCIL-2 [Concomitant]
     Dosage: UNK
  21. FLAXSEED OIL [Concomitant]
     Dosage: UNK
  22. GABAPENTIN [Concomitant]

REACTIONS (2)
  - BLADDER PAIN [None]
  - URINARY RETENTION [None]
